FAERS Safety Report 8621483-7 (Version None)
Quarter: 2012Q3

REPORT INFORMATION
  Report Type: 
  Country: None (occurrence: None)
  Receive Date: 20120824
  Receipt Date: 20120815
  Transmission Date: 20120928
  Serious: No
  Sender: FDA-Public Use
  Company Number: US-ASTRAZENECA-2012SE57894

PATIENT
  Age: 73 Year
  Sex: Female

DRUGS (3)
  1. LEVOXYL [Concomitant]
  2. SPIRONOLACT/HCTZ [Concomitant]
  3. ARIMIDEX [Suspect]
     Route: 048

REACTIONS (1)
  - DRUG INTOLERANCE [None]
